FAERS Safety Report 16031785 (Version 1)
Quarter: 2019Q1

REPORT INFORMATION
  Report Type: Other
  Country: US (occurrence: US)
  Receive Date: 20190304
  Receipt Date: 20190304
  Transmission Date: 20190418
  Serious: Yes (Death, Life-Threatening, Hospitalization, Other)
  Sender: FDA-Public Use
  Company Number: US-INTERCEPT-PM2019000293

PATIENT

DRUGS (1)
  1. OCALIVA [Suspect]
     Active Substance: OBETICHOLIC ACID
     Indication: PRIMARY BILIARY CHOLANGITIS
     Dosage: 5 MG, QD
     Route: 048
     Dates: start: 20180521, end: 201812

REACTIONS (11)
  - Cardiac arrest [Unknown]
  - Hip fracture [Unknown]
  - Abdominal compartment syndrome [Not Recovered/Not Resolved]
  - Anaemia [Unknown]
  - Hypotension [Unknown]
  - Deep vein thrombosis [Unknown]
  - Hepatorenal syndrome [Unknown]
  - Aneurysm ruptured [Unknown]
  - Hyperkalaemia [Unknown]
  - Post procedural infection [Fatal]
  - Peritonitis bacterial [Unknown]

NARRATIVE: CASE EVENT DATE: 201811
